FAERS Safety Report 8419445-8 (Version None)
Quarter: 2012Q2

REPORT INFORMATION
  Report Type: 
  Country: None (occurrence: None)
  Receive Date: 20120607
  Receipt Date: 20120530
  Transmission Date: 20120825
  Serious: Yes (Hospitalization)
  Sender: FDA-Public Use
  Company Number: JP-GLAXOSMITHKLINE-B0802144A

PATIENT
  Age: 64 Year
  Sex: Female

DRUGS (7)
  1. ZOLPIDEM [Concomitant]
     Indication: INSOMNIA
     Route: 048
  2. UNKNOWN DRUG [Concomitant]
     Indication: CONSTIPATION
     Route: 065
  3. NITRAZEPAM [Concomitant]
     Route: 048
  4. LAMICTAL [Suspect]
     Indication: BIPOLAR DISORDER
     Dosage: 25MG PER DAY
     Route: 048
     Dates: start: 20120404, end: 20120511
  5. LITHIUM CARBONATE [Concomitant]
     Indication: BIPOLAR DISORDER
     Dosage: 400MG PER DAY
     Route: 048
     Dates: end: 20120511
  6. BEZATOL SR [Concomitant]
     Indication: HYPERLIPIDAEMIA
     Dosage: 200MG PER DAY
     Route: 048
     Dates: end: 20120511
  7. ZYPREXA [Concomitant]
     Indication: BIPOLAR DISORDER
     Dosage: 5MG PER DAY
     Route: 048
     Dates: start: 20120404, end: 20120511

REACTIONS (3)
  - RASH GENERALISED [None]
  - ERYTHEMA [None]
  - ECZEMA [None]
